FAERS Safety Report 4425470-4 (Version None)
Quarter: 2004Q3

REPORT INFORMATION
  Report Type: 
  Country: None (occurrence: None)
  Receive Date: 20040813
  Receipt Date: 20040811
  Transmission Date: 20050211
  Serious: Yes (Death, Hospitalization)
  Sender: FDA-Public Use
  Company Number: GB-ROCHE-377353

PATIENT
  Sex: Female

DRUGS (1)
  1. CAPECITABINE [Suspect]
     Route: 048

REACTIONS (2)
  - CHEST DISCOMFORT [None]
  - PULMONARY OEDEMA [None]
